FAERS Safety Report 18445981 (Version 1)
Quarter: 2020Q4

REPORT INFORMATION
  Report Type: Spontaneous
  Country: US (occurrence: US)
  Receive Date: 20201030
  Receipt Date: 20201030
  Transmission Date: 20210114
  Serious: No
  Sender: FDA-Public Use
  Company Number: US-TARO-2020TAR00530

PATIENT

DRUGS (1)
  1. PHENYTOIN SODIUM EXTENDED [Suspect]
     Active Substance: PHENYTOIN SODIUM
     Indication: SEIZURE
     Dosage: UNK
     Route: 065

REACTIONS (1)
  - Anticonvulsant drug level decreased [Unknown]
